FAERS Safety Report 10479887 (Version 4)
Quarter: 2015Q2

REPORT INFORMATION
  Report Type: Spontaneous
  Country: BR (occurrence: BR)
  Receive Date: 20140929
  Receipt Date: 20150626
  Transmission Date: 20150821
  Serious: Yes (Other)
  Sender: FDA-Public Use
  Company Number: BR-UCBSA-2014007364

PATIENT
  Age: 61 Year
  Sex: Female

DRUGS (6)
  1. CIMZIA [Suspect]
     Active Substance: CERTOLIZUMAB PEGOL
     Indication: RHEUMATOID ARTHRITIS
     Dosage: 200MG/ML, 1 INJECTION
     Route: 058
     Dates: start: 201406
  2. GARDENAL [Concomitant]
     Active Substance: PHENOBARBITAL
     Indication: SEIZURE
     Dosage: UNK, 2X/DAY (BID) (1/2 TABLET)
     Route: 048
     Dates: start: 2002
  3. GLUCOSAMINE SULFATE W/CHONDROITIN [Concomitant]
     Indication: PAIN IN EXTREMITY
     Dosage: 1 SACHET/IN FASTED STATE
     Route: 048
     Dates: start: 201407
  4. MODURETIC 5-50 [Concomitant]
     Active Substance: AMILORIDE HYDROCHLORIDE\HYDROCHLOROTHIAZIDE
     Indication: HYPERTENSION
     Dosage: 50/5MG
     Route: 048
     Dates: start: 2002
  5. OMEPRAZOLE. [Suspect]
     Active Substance: OMEPRAZOLE
     Indication: PROPHYLAXIS
     Dosage: UNK, DAILY
     Route: 048
     Dates: start: 2012
  6. LOSARTAN [Concomitant]
     Active Substance: LOSARTAN
     Indication: HYPERTENSION
     Dosage: UNK
     Route: 048
     Dates: start: 2002

REACTIONS (4)
  - Joint swelling [Recovered/Resolved]
  - Vein disorder [Recovered/Resolved]
  - Peripheral swelling [Not Recovered/Not Resolved]
  - Pain in extremity [Recovered/Resolved]

NARRATIVE: CASE EVENT DATE: 201407
